FAERS Safety Report 18268849 (Version 1)
Quarter: 2020Q3

REPORT INFORMATION
  Report Type: Report from Study
  Country: BR (occurrence: BR)
  Receive Date: 20200915
  Receipt Date: 20200915
  Transmission Date: 20201103
  Serious: Yes (Other)
  Sender: FDA-Public Use
  Company Number: NVSC2020BR250219

PATIENT
  Sex: Male

DRUGS (1)
  1. SEEBRI [Suspect]
     Active Substance: GLYCOPYRROLATE
     Indication: PRODUCT USED FOR UNKNOWN INDICATION
     Dosage: 50 MG
     Route: 065

REACTIONS (4)
  - Product prescribing error [Unknown]
  - Haemorrhoidal haemorrhage [Unknown]
  - Haemorrhoids [Unknown]
  - Malaise [Unknown]
